FAERS Safety Report 17906896 (Version 2)
Quarter: 2022Q2

REPORT INFORMATION
  Report Type: Spontaneous
  Country: US (occurrence: US)
  Receive Date: 20200617
  Receipt Date: 20220511
  Transmission Date: 20220720
  Serious: No
  Sender: FDA-Public Use
  Company Number: US-PFIZER INC-2020233100

PATIENT
  Age: 65 Year
  Sex: Female
  Weight: 90.72 kg

DRUGS (7)
  1. IBRANCE [Suspect]
     Active Substance: PALBOCICLIB
     Indication: Breast cancer metastatic
     Dosage: 125 MG, CYCLIC (125MG ONCE A DAY FOR 21 DAYS AND THEN OFF FOR 7 DAYS)
  2. LEXAPRO [Concomitant]
     Active Substance: ESCITALOPRAM OXALATE
     Indication: Depression
     Dosage: 25 MG, 1X/DAY
     Route: 048
  3. MELATONIN [Concomitant]
     Active Substance: MELATONIN
     Indication: Sleep disorder
     Dosage: UNK
  4. VITAMIN B12 [Concomitant]
     Active Substance: CYANOCOBALAMIN
     Dosage: UNK, 1X/DAY (ONE TIME A DAY)
  5. CHOLECALCIFEROL [Concomitant]
     Active Substance: CHOLECALCIFEROL
     Dosage: 500 MG, 1X/DAY (ONE TIME A DAY)
  6. CALCIUM [Concomitant]
     Active Substance: CALCIUM
     Dosage: 500 MG
  7. LISINOPRIL [Concomitant]
     Active Substance: LISINOPRIL
     Indication: Glaucoma
     Dosage: 2 DROP (1 DROP IN EACH EYE)

REACTIONS (2)
  - Somnolence [Unknown]
  - Fatigue [Unknown]
